FAERS Safety Report 5774836-9 (Version None)
Quarter: 2008Q2

REPORT INFORMATION
  Report Type: 
  Country: None (occurrence: None)
  Receive Date: 20080612
  Receipt Date: 20080529
  Transmission Date: 20081010
  Serious: Yes (Hospitalization)
  Sender: FDA-Public Use
  Company Number: MEDI-0006845

PATIENT
  Age: 9 Month

DRUGS (1)
  1. SYNAGIS [Suspect]
     Dosage: 68 MG,INTRAMUSCULAR
     Route: 030
     Dates: start: 20071025, end: 20071025

REACTIONS (2)
  - INTERCOSTAL RETRACTION [None]
  - PNEUMONIA [None]
